FAERS Safety Report 18031794 (Version 1)
Quarter: 2020Q3

REPORT INFORMATION
  Report Type: Spontaneous
  Country: CH (occurrence: CH)
  Receive Date: 20200716
  Receipt Date: 20200716
  Transmission Date: 20201103
  Serious: Yes (Other)
  Sender: FDA-Public Use
  Company Number: CH-ASTRAZENECA-2020SE88505

PATIENT
  Age: 41 Year
  Sex: Female

DRUGS (6)
  1. SYMBICORT [Suspect]
     Active Substance: BUDESONIDE\FORMOTEROL FUMARATE DIHYDRATE
     Dosage: 200/6 ONCE DAILY
     Route: 055
  2. METAMUCIL [Suspect]
     Active Substance: PLANTAGO SEED
     Dosage: UNKNOWN
     Route: 065
  3. GILENYA [Suspect]
     Active Substance: FINGOLIMOD HYDROCHLORIDE
     Route: 065
     Dates: start: 201410
  4. VESICARE [Suspect]
     Active Substance: SOLIFENACIN SUCCINATE
     Route: 065
     Dates: start: 202001
  5. VITAMIN D3 [Suspect]
     Active Substance: CHOLECALCIFEROL
     Dosage: UNKNOWN
     Route: 065
  6. MIRENA [Suspect]
     Active Substance: LEVONORGESTREL
     Dosage: UNKNOWN
     Route: 065

REACTIONS (1)
  - Proctitis ulcerative [Unknown]

NARRATIVE: CASE EVENT DATE: 20200708
